FAERS Safety Report 23140857 (Version 2)
Quarter: 2023Q4

REPORT INFORMATION
  Report Type: Spontaneous
  Country: PT (occurrence: PT)
  Receive Date: 20231103
  Receipt Date: 20231201
  Transmission Date: 20240110
  Serious: Yes (Other)
  Sender: FDA-Public Use
  Company Number: PT-JNJFOC-20231071247

PATIENT

DRUGS (1)
  1. IMBRUVICA [Suspect]
     Active Substance: IBRUTINIB
     Indication: Mantle cell lymphoma refractory
     Route: 048

REACTIONS (8)
  - Cardiotoxicity [Unknown]
  - Hepatotoxicity [Unknown]
  - Haematotoxicity [Unknown]
  - Neurotoxicity [Unknown]
  - Infection [Unknown]
  - Musculoskeletal toxicity [Unknown]
  - Gastrointestinal toxicity [Unknown]
  - Haemorrhage [Unknown]
